FAERS Safety Report 25558040 (Version 2)
Quarter: 2025Q3

REPORT INFORMATION
  Report Type: Spontaneous
  Country: JP (occurrence: JP)
  Receive Date: 20250715
  Receipt Date: 20250813
  Transmission Date: 20251020
  Serious: Yes (Hospitalization)
  Sender: TAIHO ONCOLOGY INC
  Company Number: JP-TAIHOP-2025-007371

PATIENT
  Age: 66 Year
  Sex: Female
  Weight: 47.7 kg

DRUGS (5)
  1. LONSURF [Suspect]
     Active Substance: TIPIRACIL HYDROCHLORIDE\TRIFLURIDINE
     Indication: Colorectal cancer
     Dosage: FORM STRENGTH AND CYCLE UNKNOWN.
     Route: 048
     Dates: start: 20250623, end: 20250704
  2. LONSURF [Suspect]
     Active Substance: TIPIRACIL HYDROCHLORIDE\TRIFLURIDINE
     Indication: Appendix cancer
     Dosage: FORM STRENGTH AND CYCLE UNKNOWN.
     Route: 048
     Dates: start: 20250723, end: 20250806
  3. OXYCODONE [Concomitant]
     Active Substance: OXYCODONE
     Indication: Cancer pain
     Dosage: EVERYDAY
     Route: 048
     Dates: start: 20240807
  4. CALONAL [Concomitant]
     Active Substance: ACETAMINOPHEN
     Indication: Cancer pain
     Dosage: EVERYDAY
     Route: 048
     Dates: start: 20240807
  5. MIYA-BM [Concomitant]
     Active Substance: CLOSTRIDIUM BUTYRICUM SPORES STRAIN M-55
     Indication: Enterocolitis
     Dosage: EVERYDAY
     Route: 048
     Dates: start: 20240807

REACTIONS (4)
  - Anaemia [Recovering/Resolving]
  - Platelet count decreased [Recovering/Resolving]
  - Tumour haemorrhage [Recovering/Resolving]
  - Face oedema [Not Recovered/Not Resolved]

NARRATIVE: CASE EVENT DATE: 20250707
